FAERS Safety Report 13511878 (Version 4)
Quarter: 2017Q2

REPORT INFORMATION
  Report Type: Report from Study
  Country: FR (occurrence: FR)
  Receive Date: 20170504
  Receipt Date: 20170622
  Transmission Date: 20170830
  Serious: Yes (Hospitalization, Other)
  Sender: FDA-Public Use
  Company Number: FR-AMGEN-FRANI2017054156

PATIENT
  Age: 56 Year
  Sex: Male

DRUGS (13)
  1. OXYCONTIN [Concomitant]
     Active Substance: OXYCODONE HYDROCHLORIDE
     Dosage: 100 MG, BID
  2. DEXAMETHASONE. [Suspect]
     Active Substance: DEXAMETHASONE
     Indication: PLASMA CELL MYELOMA
     Dosage: 30 MG ON DAY 8, 9, 15, 16 AND 22
     Route: 065
     Dates: start: 201701
  3. NEURONTIN [Concomitant]
     Active Substance: GABAPENTIN
     Dosage: UNK (600 MG IN MORNING AND 900 MG IN EVENING)
  4. ALPRAZOLAM. [Concomitant]
     Active Substance: ALPRAZOLAM
     Dosage: 0.25 MG, TID
  5. CARFILZOMIB [Suspect]
     Active Substance: CARFILZOMIB
     Indication: PLASMA CELL MYELOMA
     Dosage: 56 MG/M2, UNK
     Route: 065
     Dates: start: 201701
  6. OMEPRAZOLE. [Concomitant]
     Active Substance: OMEPRAZOLE
     Dosage: 20 MG, QD
  7. MOVICOL [Concomitant]
     Active Substance: POLYETHYLENE GLYCOL 3350\POTASSIUM CHLORIDE\SODIUM BICARBONATE\SODIUM CHLORIDE
     Dosage: UNK UNK, AS NECESSARY
  8. ZOLPIDEM [Concomitant]
     Active Substance: ZOLPIDEM\ZOLPIDEM TARTRATE
     Dosage: 10 MG, UNK (AT BEDTIME)
  9. ORACILLINE [Concomitant]
     Active Substance: PENICILLIN V
     Dosage: 100000 IU, BID
  10. OXYNORMORO [Concomitant]
     Active Substance: OXYCODONE
     Dosage: 30 MG, UNK (IN INTERDOSE)
  11. BACTRIM [Concomitant]
     Active Substance: SULFAMETHOXAZOLE\TRIMETHOPRIM
     Dosage: UNK (1 TABLET ON MONDAY, WENESDAY, FRIDAY)
  12. VALACICLOVIR [Concomitant]
     Active Substance: VALACYCLOVIR HYDROCHLORIDE
     Dosage: 500 MG, BID
  13. LEDERFOLINE [Concomitant]
     Active Substance: LEUCOVORIN CALCIUM
     Dosage: 25 MG, UNK (1 CAPSULE ON THURDAYS AND FRIDAYS)

REACTIONS (11)
  - Pericardial effusion [Unknown]
  - Chest discomfort [Recovered/Resolved]
  - Respiratory failure [Unknown]
  - Cough [Unknown]
  - Anaemia [Unknown]
  - Off label use [Unknown]
  - Plasma cell myeloma [Unknown]
  - Blood folate increased [Unknown]
  - Dyspnoea [Unknown]
  - Rash [Unknown]
  - Bradypnoea [Unknown]

NARRATIVE: CASE EVENT DATE: 2017
